FAERS Safety Report 12433814 (Version 5)
Quarter: 2016Q3

REPORT INFORMATION
  Report Type: Spontaneous
  Country: US (occurrence: US)
  Receive Date: 20160603
  Receipt Date: 20160930
  Transmission Date: 20161109
  Serious: Yes (Hospitalization, Other)
  Sender: FDA-Public Use
  Company Number: US-SA-2016SA104774

PATIENT
  Age: 72 Year
  Sex: Female

DRUGS (3)
  1. ALIROCUMAB PREFILLED PEN [Concomitant]
     Active Substance: ALIROCUMAB
     Indication: HYPERLIPIDAEMIA
     Route: 058
     Dates: start: 201605
  2. PRALUENT [Suspect]
     Active Substance: ALIROCUMAB
     Indication: HYPERLIPIDAEMIA
     Route: 058
     Dates: start: 201605
  3. PRAMIPEXOLE. [Concomitant]
     Active Substance: PRAMIPEXOLE

REACTIONS (24)
  - Loss of consciousness [Unknown]
  - Oedema [Unknown]
  - Blindness unilateral [Unknown]
  - Peripheral swelling [Unknown]
  - Blister [Recovering/Resolving]
  - Memory impairment [Unknown]
  - Blood pressure increased [Unknown]
  - Nail disorder [Not Recovered/Not Resolved]
  - Constipation [Unknown]
  - Onychalgia [Not Recovered/Not Resolved]
  - Nausea [Recovering/Resolving]
  - Dizziness [Unknown]
  - Paraesthesia [Unknown]
  - Skin exfoliation [Not Recovered/Not Resolved]
  - Carotid artery disease [Unknown]
  - Fall [Unknown]
  - Cerebrovascular accident [Unknown]
  - Cough [Unknown]
  - Confusional state [Unknown]
  - Swelling [Not Recovered/Not Resolved]
  - Fatigue [Unknown]
  - Vomiting [Unknown]
  - Somnolence [Recovering/Resolving]
  - Abdominal discomfort [Unknown]

NARRATIVE: CASE EVENT DATE: 20160523
